FAERS Safety Report 10412695 (Version 2)
Quarter: 2014Q3

REPORT INFORMATION
  Report Type: Spontaneous
  Country: JP (occurrence: JP)
  Receive Date: 20140827
  Receipt Date: 20140827
  Transmission Date: 20150326
  Serious: Yes (Other)
  Sender: FDA-Public Use
  Company Number: JP-EISAI INC-E2020-14396-SPO-JP

PATIENT
  Age: 89 Year
  Sex: Male
  Weight: 54 kg

DRUGS (1)
  1. ARICEPT [Suspect]
     Active Substance: DONEPEZIL HYDROCHLORIDE
     Indication: DEMENTIA ALZHEIMER^S TYPE
     Route: 048
     Dates: start: 20100728, end: 20140613

REACTIONS (1)
  - Sick sinus syndrome [Recovering/Resolving]

NARRATIVE: CASE EVENT DATE: 20140613
